FAERS Safety Report 23820036 (Version 4)
Quarter: 2024Q3

REPORT INFORMATION
  Report Type: Report from Study
  Country: GB (occurrence: GB)
  Receive Date: 20240506
  Receipt Date: 20240717
  Transmission Date: 20241017
  Serious: Yes (Hospitalization)
  Sender: AMGEN
  Company Number: GB-002147023-NVSC2024GB091763

PATIENT
  Sex: Male

DRUGS (1)
  1. AIMOVIG [Suspect]
     Active Substance: ERENUMAB-AOOE
     Indication: Migraine
     Dosage: 140 MG, Q4W (EVERY 4 WEEKS)
     Route: 058
     Dates: start: 2023

REACTIONS (7)
  - Spinal fracture [Unknown]
  - Foot fracture [Unknown]
  - Peripheral swelling [Unknown]
  - Psychotic disorder [Unknown]
  - Implant site infection [Unknown]
  - Lower limb fracture [Unknown]
  - Weight bearing difficulty [Unknown]
